FAERS Safety Report 11158323 (Version 2)
Quarter: 2015Q2

REPORT INFORMATION
  Report Type: Spontaneous
  Country: US (occurrence: US)
  Receive Date: 20150603
  Receipt Date: 20150617
  Transmission Date: 20150821
  Serious: Yes (Other)
  Sender: FDA-Public Use
  Company Number: US-IGSA-GTI003240

PATIENT
  Age: 52 Year
  Sex: Female
  Weight: 66 kg

DRUGS (18)
  1. NITROFURANTOIN. [Concomitant]
     Active Substance: NITROFURANTOIN
  2. LYRICA [Concomitant]
     Active Substance: PREGABALIN
  3. VITAMIN D /00107901/ [Concomitant]
     Active Substance: ERGOCALCIFEROL
  4. FOLIC [Concomitant]
  5. LOVAZA [Concomitant]
     Active Substance: OMEGA-3-ACID ETHYL ESTERS
  6. LORATADINE. [Concomitant]
     Active Substance: LORATADINE
  7. PANTOPRAZOLE [Concomitant]
     Active Substance: PANTOPRAZOLE SODIUM
  8. TRAZODONE [Concomitant]
     Active Substance: TRAZODONE HYDROCHLORIDE
  9. FAMOTIDINE. [Concomitant]
     Active Substance: FAMOTIDINE
  10. POTASSIUM /07939101/ [Concomitant]
  11. TRAMADOL [Concomitant]
     Active Substance: TRAMADOL
  12. GAMUNEX-C [Suspect]
     Active Substance: HUMAN IMMUNOGLOBULIN G
     Indication: CHRONIC INFLAMMATORY DEMYELINATING POLYRADICULONEUROPATHY
     Route: 042
     Dates: start: 201405, end: 201410
  13. MAG-OX [Concomitant]
     Active Substance: MAGNESIUM OXIDE
  14. INVEGA [Concomitant]
     Active Substance: PALIPERIDONE
  15. FERROUS SULFATE [Concomitant]
     Active Substance: FERROUS SULFATE\FERROUS SULFATE, DRIED
  16. MELOXICAM. [Concomitant]
     Active Substance: MELOXICAM
  17. HCTZ [Concomitant]
     Active Substance: HYDROCHLOROTHIAZIDE
  18. PTU [Concomitant]
     Active Substance: PROPYLTHIOURACIL

REACTIONS (1)
  - Acute kidney injury [Recovered/Resolved]
